FAERS Safety Report 19508384 (Version 1)
Quarter: 2021Q3

REPORT INFORMATION
  Report Type: Spontaneous
  Country: GB (occurrence: GB)
  Receive Date: 20210708
  Receipt Date: 20210708
  Transmission Date: 20211014
  Serious: Yes (Disabling)
  Sender: FDA-Public Use
  Company Number: GB-GLAXOSMITHKLINE-GBCH2021043642

PATIENT
  Age: 72 Year
  Sex: Male
  Weight: 55 kg

DRUGS (4)
  1. IBUPROFEN. [Suspect]
     Active Substance: IBUPROFEN
     Indication: PAIN
     Dosage: 400 MG, ( STAT)
     Route: 048
     Dates: start: 20210630, end: 20210630
  2. TAMSULOSIN HYDROCHLORIDE. [Concomitant]
     Active Substance: TAMSULOSIN HYDROCHLORIDE
     Indication: BENIGN PROSTATIC HYPERPLASIA
     Dosage: 400 MG, QD, (EVERY MORNING)
     Route: 065
  3. ASPIRIN. [Concomitant]
     Active Substance: ASPIRIN
     Indication: PRODUCT USED FOR UNKNOWN INDICATION
     Dosage: 600 MG, (2?3 TIMES A DAY FOR SYMPTOMATIC RELIEF)
     Route: 065
  4. ASTRAZENECA COVID?19 VACCINE [Concomitant]
     Active Substance: AZD-1222
     Indication: COVID-19 IMMUNISATION
     Dosage: 1 DF, (DOSE 2)
     Route: 065
     Dates: start: 20210410, end: 20210410

REACTIONS (5)
  - Pain [Recovered/Resolved with Sequelae]
  - Peripheral swelling [Recovered/Resolved with Sequelae]
  - Joint swelling [Recovered/Resolved with Sequelae]
  - Arthritis [Unknown]
  - Musculoskeletal stiffness [Recovered/Resolved with Sequelae]

NARRATIVE: CASE EVENT DATE: 20210630
